FAERS Safety Report 9253122 (Version 2)
Quarter: 2013Q2

REPORT INFORMATION
  Report Type: Spontaneous
  Country: CA (occurrence: CA)
  Receive Date: 20130424
  Receipt Date: 20130523
  Transmission Date: 20140414
  Serious: Yes (Hospitalization)
  Sender: FDA-Public Use
  Company Number: CA-BAYER-2013-051679

PATIENT
  Age: 47 Year
  Sex: Female

DRUGS (6)
  1. ASPIRIN [Suspect]
     Indication: MYALGIA
     Route: 048
  2. ASPIRIN [Suspect]
     Indication: COUGH
  3. ASPIRIN [Suspect]
     Indication: RHINITIS
  4. ACETAMINOPHEN [Suspect]
     Indication: COUGH
     Route: 048
  5. ACETAMINOPHEN [Suspect]
     Indication: MYALGIA
  6. ACETAMINOPHEN [Suspect]
     Indication: RHINITIS

REACTIONS (10)
  - Reye^s syndrome [Recovered/Resolved]
  - Coma [Recovered/Resolved]
  - Electroencephalogram abnormal [Recovered/Resolved]
  - Encephalopathy [Recovered/Resolved]
  - Brain oedema [Recovered/Resolved]
  - Hepatic failure [Recovered/Resolved]
  - Posturing [Recovered/Resolved]
  - Stupor [Recovered/Resolved]
  - Hepatitis A [None]
  - Abnormal behaviour [Recovered/Resolved]
